FAERS Safety Report 20395064 (Version 1)
Quarter: 2022Q1

REPORT INFORMATION
  Report Type: Spontaneous
  Country: US (occurrence: US)
  Receive Date: 20220130
  Receipt Date: 20220130
  Transmission Date: 20220423
  Serious: No
  Sender: FDA-Public Use
  Company Number: US-PAIPHARMA-2021-US-000472

PATIENT
  Age: 83 Year
  Sex: Female
  Weight: 43.09 kg

DRUGS (8)
  1. NYSTATIN [Suspect]
     Active Substance: NYSTATIN
     Indication: Candida infection
     Dosage: AS PRESCRIBED BY HCP
     Route: 048
     Dates: start: 20210106
  2. OXYGEN [Concomitant]
     Active Substance: OXYGEN
     Dosage: UNKNOWN
  3. HUMALOG [Concomitant]
     Active Substance: INSULIN LISPRO
     Dosage: UNKNOWN
  4. TOUJEO [Concomitant]
     Active Substance: INSULIN GLARGINE
     Dosage: UNKNOWN
  5. MAGNESIUM [Concomitant]
     Active Substance: MAGNESIUM
     Dosage: UNKNOWN
  6. DOCUSATE [Concomitant]
     Active Substance: DOCUSATE
     Dosage: UNKNOWN
  7. TRAZODONE [Concomitant]
     Active Substance: TRAZODONE HYDROCHLORIDE
     Dosage: UNKNOWN
  8. METAMUCIL [Concomitant]
     Active Substance: PLANTAGO SEED
     Dosage: UNKNOWN

REACTIONS (1)
  - Blood insulin increased [Not Recovered/Not Resolved]

NARRATIVE: CASE EVENT DATE: 20201207
